FAERS Safety Report 7632498-X (Version None)
Quarter: 2011Q3

REPORT INFORMATION
  Report Type: 
  Country: None (occurrence: None)
  Receive Date: 20110725
  Receipt Date: 20100921
  Transmission Date: 20111222
  Serious: Yes (Other)
  Sender: FDA-Public Use
  Company Number: US-BRISTOL-MYERS SQUIBB COMPANY-15296148

PATIENT
  Age: 53 Year
  Sex: Male
  Weight: 88 kg

DRUGS (1)
  1. WARFARIN SODIUM [Suspect]
     Indication: AORTIC VALVE REPLACEMENT
     Dosage: DOSAGE:5 MG TABS,1/2 TABLET/DAY ON MONDAYS + FRIDAYS, AND ONE WHOLE TABLET ON ALL OTHER DAYS.
     Dates: start: 20000701

REACTIONS (1)
  - INTERNATIONAL NORMALISED RATIO FLUCTUATION [None]
